FAERS Safety Report 11824190 (Version 1)
Quarter: 2015Q4

REPORT INFORMATION
  Report Type: Spontaneous
  Country: CN (occurrence: CN)
  Receive Date: 20151210
  Receipt Date: 20151210
  Transmission Date: 20160305
  Serious: Yes (Other)
  Sender: FDA-Public Use
  Company Number: CN-PFIZER INC-2015412446

PATIENT
  Age: 39 Year
  Sex: Male
  Weight: 89.5 kg

DRUGS (1)
  1. LIPITOR [Suspect]
     Active Substance: ATORVASTATIN CALCIUM
     Indication: HYPERLIPIDAEMIA
     Dosage: 20 MG, 1X/DAY
     Route: 048
     Dates: start: 20130829, end: 20130904

REACTIONS (4)
  - Myalgia [Recovering/Resolving]
  - Blood creatine phosphokinase increased [Unknown]
  - Blood creatine phosphokinase MB increased [Unknown]
  - Hepatic enzyme increased [Unknown]

NARRATIVE: CASE EVENT DATE: 20130904
